FAERS Safety Report 13007326 (Version 1)
Quarter: 2016Q4

REPORT INFORMATION
  Report Type: Report from Study
  Country: CA (occurrence: CA)
  Receive Date: 20161207
  Receipt Date: 20161207
  Transmission Date: 20170207
  Serious: Yes (Other)
  Sender: FDA-Public Use
  Company Number: CA-GILEAD-2016-0245646

PATIENT
  Age: 51 Year
  Sex: Male

DRUGS (2)
  1. ACLASTA [Concomitant]
     Active Substance: ZOLEDRONIC ACID
  2. TRUVADA [Suspect]
     Active Substance: EMTRICITABINE\TENOFOVIR DISOPROXIL FUMARATE
     Indication: PRODUCT USED FOR UNKNOWN INDICATION
     Dosage: UNK
     Route: 065
     Dates: start: 201503

REACTIONS (4)
  - Hypophosphataemia [Unknown]
  - Osteoporosis [Unknown]
  - Glomerular filtration rate decreased [Unknown]
  - Proteinuria [Unknown]
